FAERS Safety Report 4645722-2 (Version None)
Quarter: 2005Q2

REPORT INFORMATION
  Report Type: 
  Country: None (occurrence: None)
  Receive Date: 20050425
  Receipt Date: 20050412
  Transmission Date: 20051028
  Serious: Yes (Death)
  Sender: FDA-Public Use
  Company Number: 2005055483

PATIENT
  Sex: Male

DRUGS (1)
  1. GEODON [Suspect]
     Indication: SCHIZOPHRENIA
     Dosage: (80 MG), ORAL
     Route: 048

REACTIONS (1)
  - CARDIAC DISORDER [None]
